FAERS Safety Report 6190117-6 (Version None)
Quarter: 2009Q2

REPORT INFORMATION
  Report Type: 
  Country: None (occurrence: None)
  Receive Date: 20090514
  Receipt Date: 20090508
  Transmission Date: 20091009
  Serious: Yes (Hospitalization)
  Sender: FDA-Public Use
  Company Number: US-MEDIMMUNE-MEDI-0008375

PATIENT
  Age: 21 Month
  Sex: Male

DRUGS (1)
  1. SYNAGIS [Suspect]
     Indication: ANTIVIRAL PROPHYLAXIS
     Dates: start: 20081129, end: 20081129

REACTIONS (2)
  - LOWER RESPIRATORY TRACT INFECTION [None]
  - PULMONARY HYPERTENSION [None]
